FAERS Safety Report 4340661-9 (Version None)
Quarter: 2004Q2

REPORT INFORMATION
  Report Type: 
  Country: None (occurrence: None)
  Receive Date: 20040413
  Receipt Date: 20040407
  Transmission Date: 20050107
  Serious: Yes (Death, Other)
  Sender: FDA-Public Use
  Company Number: USA-2003-0011281

PATIENT
  Age: 41 Year
  Sex: Female
  Weight: 97.5 kg

DRUGS (2)
  1. OXYCODONE HCL [Suspect]
  2. HYDROCODONE BITARTRATE [Suspect]

REACTIONS (10)
  - ACCIDENTAL EXPOSURE [None]
  - AUTOIMMUNE THYROIDITIS [None]
  - COMA [None]
  - DRUG ABUSER [None]
  - DRUG TOXICITY [None]
  - HEPATIC STEATOSIS [None]
  - OBESITY [None]
  - PERICARDITIS [None]
  - PNEUMONIA [None]
  - RESPIRATORY ARREST [None]
